FAERS Safety Report 7906379-8 (Version None)
Quarter: 2011Q4

REPORT INFORMATION
  Report Type: 
  Country: None (occurrence: None)
  Receive Date: 20111110
  Receipt Date: 20111108
  Transmission Date: 20120403
  Serious: Yes (Life-Threatening, Hospitalization)
  Sender: FDA-Public Use
  Company Number: US-B.I. PHARMACEUTICALS,INC./RIDGEFIELD-2011-BP-24669BP

PATIENT
  Age: 83 Year
  Sex: Female
  Weight: 53.52 kg

DRUGS (5)
  1. LIPITOR [Concomitant]
  2. PRADAXA [Suspect]
     Indication: ATRIAL FIBRILLATION
     Dosage: 300 MG
     Dates: end: 20110901
  3. DIOVAN [Concomitant]
  4. TYLENOL W/ CODEINE NO. 3 [Concomitant]
  5. ASPIRIN [Concomitant]

REACTIONS (4)
  - LARGE INTESTINAL HAEMORRHAGE [None]
  - LARGE INTESTINAL ULCER [None]
  - HAEMATOCRIT DECREASED [None]
  - HAEMATOCHEZIA [None]
